FAERS Safety Report 10694981 (Version 6)
Quarter: 2015Q2

REPORT INFORMATION
  Report Type: Spontaneous
  Country: JP (occurrence: JP)
  Receive Date: 20150107
  Receipt Date: 20150409
  Transmission Date: 20150821
  Serious: Yes (Hospitalization, Other)
  Sender: FDA-Public Use
  Company Number: JP-JNJFOC-20141220082

PATIENT
  Age: 57 Year
  Sex: Female
  Weight: 55 kg

DRUGS (5)
  1. CEFAZOLIN SODIUM. [Concomitant]
     Active Substance: CEFAZOLIN SODIUM
     Indication: INFECTION
     Route: 042
     Dates: start: 20141217, end: 20141224
  2. DEXART [Concomitant]
     Active Substance: DEXAMETHASONE SODIUM PHOSPHATE
     Indication: FALLOPIAN TUBE CANCER
     Route: 042
     Dates: start: 20141212
  3. DOXIL [Suspect]
     Active Substance: DOXORUBICIN HYDROCHLORIDE
     Indication: FALLOPIAN TUBE CANCER
     Dosage: 2COURSE
     Route: 042
     Dates: start: 20141001, end: 20141001
  4. DOXIL [Suspect]
     Active Substance: DOXORUBICIN HYDROCHLORIDE
     Indication: FALLOPIAN TUBE CANCER
     Dosage: 1COURSE
     Route: 042
     Dates: start: 20140903, end: 20140903
  5. DOXIL [Suspect]
     Active Substance: DOXORUBICIN HYDROCHLORIDE
     Indication: FALLOPIAN TUBE CANCER
     Dosage: 3COURSE
     Route: 042
     Dates: start: 20141212, end: 20141212

REACTIONS (3)
  - Intestinal obstruction [Recovered/Resolved]
  - Oropharyngeal pain [Recovered/Resolved]
  - Febrile neutropenia [Recovered/Resolved]

NARRATIVE: CASE EVENT DATE: 20141222
